FAERS Safety Report 5282534-3 (Version None)
Quarter: 2007Q1

REPORT INFORMATION
  Report Type: 
  Country: None (occurrence: None)
  Receive Date: 20070326
  Receipt Date: 20070319
  Transmission Date: 20070707
  Serious: Yes (Death)
  Sender: FDA-Public Use
  Company Number: 163-20785-07021257

PATIENT
  Age: 65 Year
  Sex: Male

DRUGS (1)
  1. THALOMID [Suspect]
     Indication: MULTIPLE MYELOMA
     Dosage: 2 IN 1 D, ORAL
     Route: 048
     Dates: start: 20061010, end: 20070201

REACTIONS (1)
  - CORONARY ARTERY DISEASE [None]
